FAERS Safety Report 10716570 (Version 1)
Quarter: 2015Q1

REPORT INFORMATION
  Report Type: Report from Study
  Country: US (occurrence: US)
  Receive Date: 20150116
  Receipt Date: 20150116
  Transmission Date: 20150721
  Serious: Yes (Hospitalization)
  Sender: FDA-Public Use
  Company Number: US-SA-2015SA004619

PATIENT
  Age: 15 Year
  Sex: Male

DRUGS (10)
  1. LANTUS SOLOSTAR [Suspect]
     Active Substance: INSULIN GLARGINE
     Indication: TYPE 1 DIABETES MELLITUS
     Dosage: 50 U NIGHT AND 10 UNITS MORNING
     Route: 065
     Dates: start: 201412
  2. SOLOSTAR [Concomitant]
     Active Substance: DEVICE
     Dosage: DOSE:60 UNIT(S)
     Dates: start: 2010
  3. APIDRA SOLOSTAR [Suspect]
     Active Substance: INSULIN GLULISINE
     Indication: TYPE 1 DIABETES MELLITUS
     Dosage: DOSE: 5:1 RATIO BASED ON CARBS
     Route: 065
  4. SOLOSTAR [Concomitant]
     Active Substance: DEVICE
     Dosage: DOSE: 5:1 RATIO BASED ON CARBS.
  5. SOLOSTAR [Concomitant]
     Active Substance: DEVICE
     Dosage: 50 U AT NIGHT AND 10 U IN THE MORNING.
  6. LANTUS SOLOSTAR [Suspect]
     Active Substance: INSULIN GLARGINE
     Indication: TYPE 1 DIABETES MELLITUS
     Dosage: 30 UNITS MORNING AND NIGHT
     Route: 065
  7. SOLOSTAR [Concomitant]
     Active Substance: DEVICE
     Dosage: DOSE: 5:1 RATIO BASED ON CARBS.
     Dates: start: 2014
  8. LANTUS SOLOSTAR [Suspect]
     Active Substance: INSULIN GLARGINE
     Indication: TYPE 1 DIABETES MELLITUS
     Dosage: DOSE:60 UNIT(S)
     Route: 065
     Dates: start: 2010
  9. SOLOSTAR [Concomitant]
     Active Substance: DEVICE
     Dosage: 30 UNITS MORNING AND NIGHT.
  10. APIDRA SOLOSTAR [Suspect]
     Active Substance: INSULIN GLULISINE
     Indication: TYPE 1 DIABETES MELLITUS
     Dosage: DOSE: 5:1 RATIO BASED ON CARBS
     Route: 065
     Dates: start: 2014

REACTIONS (2)
  - Ketoacidosis [Recovered/Resolved]
  - Off label use [Unknown]
